FAERS Safety Report 10220172 (Version 1)
Quarter: 2014Q2

REPORT INFORMATION
  Report Type: Spontaneous
  Country: US (occurrence: US)
  Receive Date: 20140605
  Receipt Date: 20140605
  Transmission Date: 20141212
  Serious: No
  Sender: FDA-Public Use
  Company Number: US-009507513-1405USA015127

PATIENT
  Age: 3 Year
  Sex: Male
  Weight: 14.51 kg

DRUGS (3)
  1. CLARITIN CHEWABLE TABLETS [Suspect]
     Indication: SEASONAL ALLERGY
     Dosage: 1 DF, QD
     Route: 048
     Dates: start: 201402, end: 20140524
  2. CLARITIN CHEWABLE TABLETS [Suspect]
     Dosage: 8 DF, ONCE
     Route: 048
     Dates: start: 20140525, end: 20140525
  3. CLARITIN CHEWABLE TABLETS [Suspect]
     Dosage: 1 DF, QD
     Route: 048

REACTIONS (1)
  - Accidental overdose [Unknown]
